FAERS Safety Report 8032499-6 (Version None)
Quarter: 2011Q4

REPORT INFORMATION
  Report Type: 
  Country: None (occurrence: None)
  Receive Date: 20111223
  Receipt Date: 20111221
  Transmission Date: 20120403
  Serious: Yes (Hospitalization)
  Sender: FDA-Public Use
  Company Number: 2011SP035870

PATIENT
  Age: 23 Year
  Sex: Female
  Weight: 86.1834 kg

DRUGS (2)
  1. NUVARING [Suspect]
     Indication: MENSTRUAL DISORDER
     Dates: start: 20080701, end: 20090805
  2. NUVARING [Suspect]
     Indication: CONTRACEPTION
     Dates: start: 20080701, end: 20090805

REACTIONS (25)
  - MIGRAINE [None]
  - PAIN IN EXTREMITY [None]
  - HAEMANGIOMA OF LIVER [None]
  - SLEEP APNOEA SYNDROME [None]
  - PLEURITIC PAIN [None]
  - DYSPNOEA [None]
  - DEEP VEIN THROMBOSIS [None]
  - PARAESTHESIA ORAL [None]
  - DEPRESSION [None]
  - OXYGEN SATURATION DECREASED [None]
  - VERTIGO [None]
  - HEADACHE [None]
  - PULMONARY EMBOLISM [None]
  - NASAL SEPTAL OPERATION [None]
  - NERVE INJURY [None]
  - PROTEUS TEST POSITIVE [None]
  - HYPOAESTHESIA ORAL [None]
  - VISION BLURRED [None]
  - ACTIVATED PARTIAL THROMBOPLASTIN TIME PROLONGED [None]
  - RENAL DISORDER [None]
  - GALLBLADDER OPERATION [None]
  - ASTHMA [None]
  - CARDIOVASCULAR DISORDER [None]
  - DIZZINESS [None]
  - PULMONARY INFARCTION [None]
